FAERS Safety Report 5460934-6 (Version None)
Quarter: 2007Q3

REPORT INFORMATION
  Report Type: 
  Country: None (occurrence: None)
  Receive Date: 20070810
  Receipt Date: 20061229
  Transmission Date: 20080115
  Serious: Yes (Life-Threatening, Other)
  Sender: FDA-Public Use
  Company Number: 200615745BWH

PATIENT
  Age: 3 Month
  Sex: Female
  Weight: 7 kg

DRUGS (12)
  1. TRASYLOL [Suspect]
     Indication: ANGIOPLASTY
     Dosage: 1 ML, ONCE, INTRAVENOUS; 40 ML, INTRAVENOUS
     Route: 042
     Dates: start: 20060911
  2. TRASYLOL [Suspect]
     Indication: ARTERIAL THERAPEUTIC PROCEDURE
     Dosage: 1 ML, ONCE, INTRAVENOUS; 40 ML, INTRAVENOUS
     Route: 042
     Dates: start: 20060911
  3. TRASYLOL [Suspect]
     Indication: ANGIOPLASTY
     Dosage: 1 ML, ONCE, INTRAVENOUS; 40 ML, INTRAVENOUS
     Route: 042
     Dates: start: 20060911
  4. TRASYLOL [Suspect]
     Indication: ARTERIAL THERAPEUTIC PROCEDURE
     Dosage: 1 ML, ONCE, INTRAVENOUS; 40 ML, INTRAVENOUS
     Route: 042
     Dates: start: 20060911
  5. SEVOFLURANE [Concomitant]
  6. FENTANYL [Concomitant]
  7. PAVULON [Concomitant]
  8. ANCEF [Concomitant]
  9. SOLU-MEDROL [Concomitant]
  10. ALBUMIN (HUMAN) [Concomitant]
  11. LACTATED RINGER'S [Concomitant]
  12. D5 / 0.2 NACL [Concomitant]

REACTIONS (6)
  - ANAPHYLACTIC SHOCK [None]
  - BLOOD PRESSURE DECREASED [None]
  - HYPERSENSITIVITY [None]
  - OXYGEN SATURATION [None]
  - OXYGEN SATURATION DECREASED [None]
  - WHEEZING [None]
